FAERS Safety Report 7070701-8 (Version None)
Quarter: 2010Q4

REPORT INFORMATION
  Report Type: 
  Country: None (occurrence: None)
  Receive Date: 20101027
  Receipt Date: 20101027
  Transmission Date: 20110411
  Serious: Yes (Other)
  Sender: FDA-Public Use
  Company Number: None

PATIENT
  Age: 11 Month
  Sex: Male
  Weight: 12.7007 kg

DRUGS (1)
  1. HYLAND TEETHING TABLETS [Suspect]
     Indication: TEETHING
     Dosage: 3 TABLETS 4-6 HOURS PO
     Route: 048
     Dates: start: 20100601, end: 20101024

REACTIONS (4)
  - AGITATION [None]
  - CONSTIPATION [None]
  - DIARRHOEA [None]
  - RESTLESSNESS [None]
